FAERS Safety Report 4814199-6 (Version None)
Quarter: 2005Q4

REPORT INFORMATION
  Report Type: 
  Country: None (occurrence: None)
  Receive Date: 20051028
  Receipt Date: 20051018
  Transmission Date: 20060501
  Serious: Yes (Other)
  Sender: FDA-Public Use
  Company Number: 2005AP05498

PATIENT
  Age: 47 Year
  Sex: Male

DRUGS (7)
  1. FELODIPINE [Suspect]
     Indication: ESSENTIAL HYPERTENSION
     Dosage: STARTED DAY 3. STOPPED ON DAY 29
  2. NEORAL [Interacting]
     Indication: COMPLICATIONS OF TRANSPLANT SURGERY
     Route: 048
  3. NEORAL [Interacting]
     Indication: IMMUNOSUPPRESSION
     Route: 048
  4. NEORAL [Interacting]
     Dosage: DAY 10
     Route: 048
  5. NEORAL [Interacting]
     Dosage: DAY 10
     Route: 048
  6. PREDNISOLONE [Concomitant]
     Indication: IMMUNOSUPPRESSION
  7. CELLCEPT [Concomitant]
     Indication: IMMUNOSUPPRESSION

REACTIONS (4)
  - DRUG INTERACTION [None]
  - GRAFT COMPLICATION [None]
  - LYMPHOCELE [None]
  - MALABSORPTION [None]
